FAERS Safety Report 5302893-2 (Version None)
Quarter: 2007Q2

REPORT INFORMATION
  Report Type: 
  Country: None (occurrence: None)
  Receive Date: 20070419
  Receipt Date: 20070419
  Transmission Date: 20071010
  Serious: Yes (Death)
  Sender: FDA-Public Use
  Company Number: None

PATIENT
  Age: 79 Year
  Sex: Male

DRUGS (6)
  1. RITUXIMAB [Suspect]
  2. THALIDOMIDE [Suspect]
  3. PREDNISONE TAB [Suspect]
  4. ETOPOSIDE [Suspect]
  5. PROCARBAZINE [Suspect]
  6. CYTOXAN [Suspect]

REACTIONS (4)
  - DISEASE PROGRESSION [None]
  - DYSARTHRIA [None]
  - GAIT DISTURBANCE [None]
  - MENTAL STATUS CHANGES [None]
